FAERS Safety Report 8863705 (Version 1)
Quarter: 2012Q4

REPORT INFORMATION
  Report Type: 
  Country: US (occurrence: US)
  Receive Date: 20121024
  Receipt Date: 20121024
  Transmission Date: 20130627
  Serious: No
  Sender: FDA-Public Use
  Company Number: US-AMGEN-USASP2011063901

PATIENT
  Age: 62 Year
  Sex: Female
  Weight: 61.22 kg

DRUGS (11)
  1. ENBREL [Suspect]
     Indication: PRODUCT USED FOR UNKNOWN INDICATION
     Dosage: 25 mg, 2 times/wk
     Route: 058
  2. MIACALCIN SPR 200/ACT [Concomitant]
     Dosage: UNK
  3. PLAQUENIL [Concomitant]
     Dosage: 200 mg, UNK
  4. FOLIC ACID [Concomitant]
     Dosage: 1 mg, UNK
  5. DOXEPIN HCL [Concomitant]
     Dosage: 25 mg, UNK
  6. SIMVASTATIN [Concomitant]
     Dosage: 5 mg, UNK
  7. TRAMADOL HCL [Concomitant]
     Dosage: 50 mg, UNK
  8. FUROSEMIDE [Concomitant]
     Dosage: 20 mg, UNK
  9. LISINOPRIL [Concomitant]
     Dosage: 5 mg, UNK
  10. LORATADINE [Concomitant]
     Dosage: 10 mg, UNK
  11. OMEPRAZOLE [Concomitant]
     Dosage: 20 mg, UNK

REACTIONS (4)
  - Hypoaesthesia [Unknown]
  - Oedema peripheral [Unknown]
  - Paraesthesia [Unknown]
  - Bronchitis [Unknown]
